FAERS Safety Report 9730691 (Version 3)
Quarter: 2014Q1

REPORT INFORMATION
  Report Type: Report from Study
  Country: DE (occurrence: DE)
  Receive Date: 20131205
  Receipt Date: 20140123
  Transmission Date: 20141002
  Serious: Yes (Death, Life-Threatening, Hospitalization)
  Sender: FDA-Public Use
  Company Number: DE-ROCHE-1311495

PATIENT
  Age: 74 Year
  Sex: Male

DRUGS (1)
  1. TRASTUZUMAB [Suspect]
     Indication: GASTRIC CANCER
     Route: 065

REACTIONS (8)
  - Dyspnoea [Fatal]
  - Renal failure acute [Fatal]
  - Malignant neoplasm progression [Fatal]
  - Pyrexia [Recovered/Resolved]
  - Acute myocardial infarction [Recovered/Resolved]
  - Pleural effusion [Recovered/Resolved]
  - Renal failure [Recovered/Resolved]
  - Urinary tract disorder [Recovered/Resolved]
